FAERS Safety Report 8767392 (Version 1)
Quarter: 2012Q4

REPORT INFORMATION
  Report Type: 
  Country: JP (occurrence: JP)
  Receive Date: 20120904
  Receipt Date: 20120904
  Transmission Date: 20130627
  Serious: Yes (Other)
  Sender: FDA-Public Use
  Company Number: JP-PFIZER INC-2012212679

PATIENT

DRUGS (1)
  1. CARBOPLATIN [Suspect]
     Dosage: UNK

REACTIONS (3)
  - Cardiac failure congestive [Unknown]
  - Arrhythmia [Unknown]
  - Hypotension [Unknown]
